FAERS Safety Report 10605858 (Version 1)
Quarter: 2014Q4

REPORT INFORMATION
  Report Type: Spontaneous
  Country: US (occurrence: None)
  Receive Date: 20141121
  Receipt Date: 20141121
  Transmission Date: 20150529
  Serious: Yes (Other)
  Sender: FDA-Public Use
  Company Number: BR14-410-AE

PATIENT
  Age: 58 Year
  Sex: Male
  Weight: 108.86 kg

DRUGS (1)
  1. BENZONATATE. [Suspect]
     Active Substance: BENZONATATE
     Indication: COUGH
     Dosage: 1 CAP / THRICE DAILY / ORAL
     Route: 048
     Dates: start: 201310, end: 20141103

REACTIONS (5)
  - Dysphagia [None]
  - Sensation of foreign body [None]
  - Hypersensitivity [None]
  - Blood pressure increased [None]
  - Dyspnoea [None]

NARRATIVE: CASE EVENT DATE: 20141103
